FAERS Safety Report 6731683-9 (Version None)
Quarter: 2010Q2

REPORT INFORMATION
  Report Type: 
  Country: None (occurrence: None)
  Receive Date: 20100518
  Receipt Date: 20100518
  Transmission Date: 20101027
  Serious: Yes (Hospitalization, Other)
  Sender: FDA-Public Use
  Company Number: None

PATIENT
  Age: 31 Year
  Sex: Female
  Weight: 70.3075 kg

DRUGS (7)
  1. ELMIRON [Suspect]
     Indication: CYSTITIS
     Dosage: 100MG ONE, 3 TIMES A DAY PO
     Route: 048
     Dates: start: 20100318, end: 20100504
  2. ELMIRON [Suspect]
     Dates: start: 20100513, end: 20100513
  3. DOSTINEX [Concomitant]
  4. LYRICA [Concomitant]
  5. KLONOPIN [Concomitant]
  6. ELAVIL [Concomitant]
  7. VISTARIL [Concomitant]

REACTIONS (4)
  - HYPOMENORRHOEA [None]
  - METRORRHAGIA [None]
  - THERAPEUTIC RESPONSE UNEXPECTED [None]
  - VAGINAL HAEMORRHAGE [None]
